FAERS Safety Report 15781470 (Version 1)
Quarter: 2019Q1

REPORT INFORMATION
  Report Type: Spontaneous
  Country: US (occurrence: US)
  Receive Date: 20190102
  Receipt Date: 20190102
  Transmission Date: 20190417
  Serious: No
  Sender: FDA-Public Use
  Company Number: US-ASTRAZENECA-2018SF68011

PATIENT
  Sex: Male

DRUGS (1)
  1. FASENRA [Suspect]
     Active Substance: BENRALIZUMAB
     Indication: ASTHMA
     Dosage: 30 MG, ONE INJECTION EVERY 4 WEEKS FOR FIRST 3 DOSES THEN IS GIVEN EVERY 8 WEEKS
     Route: 058
     Dates: start: 201812

REACTIONS (2)
  - Epistaxis [Unknown]
  - Pyrexia [Unknown]
